FAERS Safety Report 20023513 (Version 3)
Quarter: 2021Q4

REPORT INFORMATION
  Report Type: Spontaneous
  Country: RU (occurrence: RU)
  Receive Date: 20211102
  Receipt Date: 20211116
  Transmission Date: 20220303
  Serious: Yes (Other)
  Sender: FDA-Public Use
  Company Number: RU-MYLANLABS-2021M1079767

PATIENT
  Age: 61 Year
  Sex: Female

DRUGS (13)
  1. FONDAPARINUX [Suspect]
     Active Substance: FONDAPARINUX
     Indication: Anticoagulant therapy
     Dosage: UNK
  2. NADROPARIN CALCIUM [Suspect]
     Active Substance: NADROPARIN CALCIUM
     Indication: Anticoagulant therapy
     Dosage: UNK
     Dates: start: 2020
  3. UMIFENOVIR [Suspect]
     Active Substance: UMIFENOVIR
     Indication: Antiviral treatment
     Dosage: UNK
     Dates: start: 2020
  4. AZITHROMYCIN [Suspect]
     Active Substance: AZITHROMYCIN
     Indication: Antiviral treatment
     Dosage: UNK
     Dates: start: 2020
  5. RITONAVIR [Suspect]
     Active Substance: RITONAVIR
     Indication: Antiviral treatment
     Dosage: UNK
     Dates: start: 2020
  6. TOCILIZUMAB [Suspect]
     Active Substance: TOCILIZUMAB
     Indication: Antiviral treatment
     Dosage: UNK
     Dates: start: 2020
  7. HYDROXYCHLOROQUINE DIPHOSPHATE [Suspect]
     Active Substance: HYDROXYCHLOROQUINE DIPHOSPHATE
     Indication: Antiviral treatment
     Dosage: UNK
     Dates: start: 2020
  8. OLUMIANT [Suspect]
     Active Substance: BARICITINIB
     Indication: Antiviral treatment
     Dosage: UNK
     Dates: start: 2020
  9. ASPIRIN [Suspect]
     Active Substance: ASPIRIN
     Indication: Antiplatelet therapy
     Dosage: UNK
     Dates: start: 2020
  10. CEFTRIAXONE [Suspect]
     Active Substance: CEFTRIAXONE
     Indication: Antibiotic therapy
     Dosage: UNK
     Dates: start: 2020, end: 2020
  11. AMOXICILLIN\CLAVULANATE POTASSIUM [Suspect]
     Active Substance: AMOXICILLIN\CLAVULANATE POTASSIUM
     Indication: Antibiotic therapy
     Dosage: UNK
     Dates: start: 2020
  12. VANCOMYCIN [Suspect]
     Active Substance: VANCOMYCIN
     Indication: Antibiotic therapy
     Dosage: UNK
     Dates: start: 2020
  13. MEROPENEM [Suspect]
     Active Substance: MEROPENEM
     Indication: Antibiotic therapy
     Dosage: UNK
     Dates: start: 2020

REACTIONS (9)
  - Hyperaemia [Recovered/Resolved]
  - Skin maceration [Recovered/Resolved]
  - Face oedema [Recovered/Resolved]
  - Peripheral swelling [Recovered/Resolved]
  - Body temperature increased [Recovered/Resolved]
  - Oxygen saturation decreased [Recovered/Resolved]
  - Computerised tomogram abnormal [Recovered/Resolved]
  - Venous thrombosis [Unknown]
  - Rash [Recovered/Resolved]

NARRATIVE: CASE EVENT DATE: 20200101
